FAERS Safety Report 23720618 (Version 2)
Quarter: 2024Q2

REPORT INFORMATION
  Report Type: Spontaneous
  Country: JP (occurrence: JP)
  Receive Date: 20240408
  Receipt Date: 20240417
  Transmission Date: 20240716
  Serious: Yes (Hospitalization, Other)
  Sender: FDA-Public Use
  Company Number: JP-TAIHO-2024-003407

PATIENT
  Age: 8 Decade

DRUGS (2)
  1. ABRAXANE [Suspect]
     Active Substance: PACLITAXEL
     Indication: Pancreatic carcinoma
     Dosage: ON DAYS 1, 8, AND 15 OF EACH 28-DAY CYCLE; ?2 CYCLES- DAILY DOSE: 125 MILLIGRAM(S)/SQ. METER
     Route: 041
  2. GEMCITABINE HYDROCHLORIDE [Suspect]
     Active Substance: GEMCITABINE HYDROCHLORIDE
     Indication: Pancreatic carcinoma
     Dosage: ON DAYS 1, 8, AND 15 OF EACH 28-DAY CYCLE; ?2 CYCLES- DAILY DOSE: 1000 MILLIGRAM(S)/SQ. METER
     Route: 041

REACTIONS (1)
  - Pancreatic fistula [Unknown]
